FAERS Safety Report 5142463-2 (Version None)
Quarter: 2006Q4

REPORT INFORMATION
  Report Type: 
  Country: None (occurrence: None)
  Receive Date: 20061102
  Receipt Date: 20061023
  Transmission Date: 20070319
  Serious: Yes (Hospitalization)
  Sender: FDA-Public Use
  Company Number: FR-ELI_LILLY_AND_COMPANY-FR200610004032

PATIENT
  Age: 79 Year
  Sex: Female

DRUGS (1)
  1. ALIMTA [Suspect]
     Indication: PERITONEAL MESOTHELIOMA MALIGNANT
     Dosage: UNK, UNKNOWN
     Route: 042

REACTIONS (3)
  - CARDIAC FAILURE ACUTE [None]
  - PAPILLARY MUSCLE RUPTURE [None]
  - RHABDOMYOLYSIS [None]
